FAERS Safety Report 12937680 (Version 2)
Quarter: 2016Q4

REPORT INFORMATION
  Report Type: Spontaneous
  Country: IT (occurrence: IT)
  Receive Date: 20161114
  Receipt Date: 20161128
  Transmission Date: 20170207
  Serious: Yes (Hospitalization, Other)
  Sender: FDA-Public Use
  Company Number: IT-MYLANLABS-2016M1049094

PATIENT

DRUGS (2)
  1. LEVOTHYROXINE. [Suspect]
     Active Substance: LEVOTHYROXINE
     Indication: HYPOTHYROIDISM
     Dosage: 50 ?G, QD
     Route: 048
  2. LEVOTHYROXINE. [Suspect]
     Active Substance: LEVOTHYROXINE
     Dosage: 2000-2500 MCG/DAY IN 6-7 DAYS
     Route: 048

REACTIONS (4)
  - Nervous system disorder [Recovering/Resolving]
  - Intentional overdose [Recovering/Resolving]
  - Coma [Recovering/Resolving]
  - Multiple organ dysfunction syndrome [Recovering/Resolving]
